FAERS Safety Report 12579012 (Version 2)
Quarter: 2016Q3

REPORT INFORMATION
  Report Type: Spontaneous
  Country: AU (occurrence: AU)
  Receive Date: 20160721
  Receipt Date: 20160810
  Transmission Date: 20161109
  Serious: Yes (Death, Hospitalization, Other)
  Sender: FDA-Public Use
  Company Number: PHHY2016AU035914

PATIENT
  Age: 82 Year
  Sex: Male

DRUGS (4)
  1. ENTRESTO [Suspect]
     Active Substance: SACUBITRIL\VALSARTAN
     Indication: LEFT VENTRICULAR FAILURE
     Dosage: 50 MG, BID
     Route: 048
  2. LASIX [Suspect]
     Active Substance: FUROSEMIDE
     Dosage: 250 MG, BID
     Route: 065
  3. ENTRESTO [Suspect]
     Active Substance: SACUBITRIL\VALSARTAN
     Dosage: 50 MG, BID
     Route: 048
     Dates: start: 20160330
  4. LASIX [Suspect]
     Active Substance: FUROSEMIDE
     Indication: PRODUCT USED FOR UNKNOWN INDICATION
     Dosage: 250 MG, QD
     Route: 065

REACTIONS (28)
  - Erythema [Unknown]
  - Rash [Recovered/Resolved]
  - Eyelid oedema [Unknown]
  - Blood calcium decreased [Unknown]
  - Cardiac failure [Fatal]
  - Flushing [Unknown]
  - Urticaria [Unknown]
  - Eosinophilia [Unknown]
  - Glomerular filtration rate decreased [Fatal]
  - Normochromic normocytic anaemia [Unknown]
  - Blood phosphorus increased [Unknown]
  - Pruritus [Unknown]
  - Gamma-glutamyltransferase increased [Unknown]
  - Blood glucose increased [Unknown]
  - Device malfunction [Unknown]
  - Renal failure [Fatal]
  - Allergic oedema [Unknown]
  - Blood cholesterol decreased [Unknown]
  - Alanine aminotransferase increased [Unknown]
  - Urine output decreased [Fatal]
  - Type I hypersensitivity [Unknown]
  - Rash [Not Recovered/Not Resolved]
  - Swelling [Unknown]
  - Skin oedema [Unknown]
  - Blood alkaline phosphatase increased [Unknown]
  - Thrombocytopenia [Unknown]
  - Dehydration [Unknown]
  - Eye oedema [Unknown]

NARRATIVE: CASE EVENT DATE: 20160229
